FAERS Safety Report 21204487 (Version 2)
Quarter: 2022Q3

REPORT INFORMATION
  Report Type: Spontaneous
  Country: US (occurrence: None)
  Receive Date: 20220812
  Receipt Date: 20220922
  Transmission Date: 20221026
  Serious: Yes (Hospitalization)
  Sender: FDA-Public Use
  Company Number: 2022A276637

PATIENT
  Age: 46 Year
  Sex: Female
  Weight: 98 kg

DRUGS (1)
  1. SAPHNELO [Suspect]
     Active Substance: ANIFROLUMAB-FNIA
     Indication: Systemic lupus erythematosus
     Route: 042
     Dates: start: 20220306

REACTIONS (11)
  - Renal failure [Recovering/Resolving]
  - Glycosylated haemoglobin increased [Recovering/Resolving]
  - Laboratory test abnormal [Recovering/Resolving]
  - Ophthalmic herpes simplex [Not Recovered/Not Resolved]
  - Pollakiuria [Not Recovered/Not Resolved]
  - Dysuria [Unknown]
  - Glucose urine present [Unknown]
  - Protein urine present [Unknown]
  - Renal impairment [Unknown]
  - Urine abnormality [Not Recovered/Not Resolved]
  - Immune system disorder [Unknown]

NARRATIVE: CASE EVENT DATE: 20220101
